FAERS Safety Report 14515743 (Version 1)
Quarter: 2018Q1

REPORT INFORMATION
  Report Type: Spontaneous
  Country: US (occurrence: US)
  Receive Date: 20180211
  Receipt Date: 20180211
  Transmission Date: 20180509
  Serious: No
  Sender: FDA-Public Use
  Company Number: US-009507513-1802USA004323

PATIENT
  Age: 34 Year
  Sex: Female

DRUGS (1)
  1. NEXPLANON [Suspect]
     Active Substance: ETONOGESTREL
     Indication: CONTRACEPTION
     Dosage: 1 DF, EVERY 3 YEARS
     Route: 059
     Dates: start: 20170403

REACTIONS (5)
  - Pyrexia [Unknown]
  - Weight increased [Unknown]
  - Implant site warmth [Unknown]
  - Headache [Unknown]
  - Implant site pain [Unknown]

NARRATIVE: CASE EVENT DATE: 201707
